FAERS Safety Report 13290242 (Version 1)
Quarter: 2017Q1

REPORT INFORMATION
  Report Type: Spontaneous
  Country: DE (occurrence: DE)
  Receive Date: 20170303
  Receipt Date: 20170303
  Transmission Date: 20170428
  Serious: Yes (Congenital Anomaly, Other)
  Sender: FDA-Public Use
  Company Number: DE-SUN PHARMACEUTICAL INDUSTRIES LTD-2017R1-134867

PATIENT
  Age: 1 Day
  Sex: Male
  Weight: 3.25 kg

DRUGS (2)
  1. FLUOXETINE [Suspect]
     Active Substance: FLUOXETINE HYDROCHLORIDE
     Indication: DEPRESSION
     Dosage: 40 MG, QD
     Route: 064
     Dates: start: 20160209, end: 20161105
  2. FOLIO [Concomitant]
     Active Substance: FOLIC ACID
     Indication: PROPHYLAXIS OF NEURAL TUBE DEFECT
     Dosage: 0.4 MG, DAILY
     Route: 064

REACTIONS (4)
  - Hypospadias [Not Recovered/Not Resolved]
  - Hypertonia neonatal [Unknown]
  - Bradycardia neonatal [Recovered/Resolved]
  - Neonatal hypoxia [Recovered/Resolved]

NARRATIVE: CASE EVENT DATE: 20161105
